FAERS Safety Report 13298213 (Version 2)
Quarter: 2017Q2

REPORT INFORMATION
  Report Type: Spontaneous
  Country: JP (occurrence: JP)
  Receive Date: 20170306
  Receipt Date: 20170411
  Transmission Date: 20170830
  Serious: Yes (Disabling)
  Sender: FDA-Public Use
  Company Number: JP-OTSUKA-2017_005166

PATIENT
  Age: 12 Year
  Sex: Female

DRUGS (1)
  1. BUSULFEX [Suspect]
     Active Substance: BUSULFAN
     Indication: BONE MARROW CONDITIONING REGIMEN
     Dosage: UNK
     Route: 041

REACTIONS (1)
  - Hypogonadism [Not Recovered/Not Resolved]
